FAERS Safety Report 16723702 (Version 3)
Quarter: 2020Q1

REPORT INFORMATION
  Report Type: Report from Study
  Country: JP (occurrence: JP)
  Receive Date: 20190821
  Receipt Date: 20200207
  Transmission Date: 20200409
  Serious: Yes (Hospitalization, Other)
  Sender: FDA-Public Use
  Company Number: JP-ROCHE-2383584

PATIENT
  Age: 65 Year
  Sex: Female
  Weight: 58 kg

DRUGS (26)
  1. TRASTUZUMAB. [Suspect]
     Active Substance: TRASTUZUMAB
     Route: 041
     Dates: start: 20181128
  2. TRASTUZUMAB. [Suspect]
     Active Substance: TRASTUZUMAB
     Route: 041
     Dates: start: 20190426
  3. PERTUZUMAB. [Suspect]
     Active Substance: PERTUZUMAB
     Route: 041
     Dates: start: 20181128
  4. TAKECAB [Concomitant]
     Active Substance: VONOPRAZAN FUMURATE
     Indication: PROPHYLAXIS AGAINST GASTROINTESTINAL ULCER
     Route: 048
     Dates: start: 20190607
  5. MOHRUS [Concomitant]
     Active Substance: KETOPROFEN
     Indication: CANCER PAIN
     Route: 062
     Dates: start: 20190614
  6. TRASTUZUMAB. [Suspect]
     Active Substance: TRASTUZUMAB
     Indication: BREAST CANCER
     Route: 041
     Dates: start: 20181128
  7. PERTUZUMAB. [Suspect]
     Active Substance: PERTUZUMAB
     Indication: BREAST CANCER
     Dosage: STRENGTH: 420MG/14ML.
     Route: 041
     Dates: start: 20181128
  8. PERTUZUMAB. [Suspect]
     Active Substance: PERTUZUMAB
     Dosage: STRENGTH: 420MG/14ML.
     Route: 041
     Dates: start: 20190208
  9. TRASTUZUMAB. [Suspect]
     Active Substance: TRASTUZUMAB
     Route: 041
     Dates: start: 20191221
  10. TRASTUZUMAB. [Suspect]
     Active Substance: TRASTUZUMAB
     Route: 041
     Dates: start: 20191218
  11. PERTUZUMAB. [Suspect]
     Active Substance: PERTUZUMAB
     Route: 041
     Dates: start: 20190809
  12. TRASTUZUMAB. [Suspect]
     Active Substance: TRASTUZUMAB
     Route: 041
     Dates: start: 20190517, end: 20190628
  13. TRASTUZUMAB. [Suspect]
     Active Substance: TRASTUZUMAB
     Route: 041
     Dates: start: 20190329
  14. TRASTUZUMAB. [Suspect]
     Active Substance: TRASTUZUMAB
     Route: 041
     Dates: start: 20190809
  15. PERTUZUMAB. [Suspect]
     Active Substance: PERTUZUMAB
     Dosage: STRENGTH: 420MG/14ML.
     Route: 041
     Dates: start: 20190426
  16. VINORELBINE DITARTRATE [Suspect]
     Active Substance: VINORELBINE TARTRATE
     Indication: BREAST CANCER
     Dosage: DOSAGE IS UNCERTAIN.
     Route: 042
     Dates: start: 20181128
  17. PERTUZUMAB. [Suspect]
     Active Substance: PERTUZUMAB
     Dosage: STRENGTH: 420MG/14ML.
     Route: 041
     Dates: start: 20190830
  18. TRASTUZUMAB. [Suspect]
     Active Substance: TRASTUZUMAB
     Route: 041
     Dates: start: 20190308
  19. TRASTUZUMAB. [Suspect]
     Active Substance: TRASTUZUMAB
     Route: 041
     Dates: start: 20190830
  20. PERTUZUMAB. [Suspect]
     Active Substance: PERTUZUMAB
     Dosage: STRENGTH: 420MG/14ML.
     Route: 041
     Dates: start: 20181221
  21. PERTUZUMAB. [Suspect]
     Active Substance: PERTUZUMAB
     Dosage: STRENGTH: 420MG/14ML.
     Route: 041
     Dates: start: 20191118
  22. PERTUZUMAB. [Suspect]
     Active Substance: PERTUZUMAB
     Dosage: STRENGTH: 420MG/14ML.
     Route: 041
     Dates: start: 20190308
  23. PERTUZUMAB. [Suspect]
     Active Substance: PERTUZUMAB
     Dosage: STRENGTH: 420MG/14ML.
     Route: 041
     Dates: start: 20190329
  24. TRASTUZUMAB. [Suspect]
     Active Substance: TRASTUZUMAB
     Route: 041
     Dates: start: 20190208
  25. PERTUZUMAB. [Suspect]
     Active Substance: PERTUZUMAB
     Dosage: STRENGTH: 420MG/14ML.
     Route: 041
     Dates: start: 20190515
  26. VINORELBINE DITARTRATE [Suspect]
     Active Substance: VINORELBINE TARTRATE
     Dosage: DOSAGE IS UNCERTAIN.
     Route: 042

REACTIONS (5)
  - Hyponatraemia [Recovered/Resolved]
  - Decreased appetite [Recovered/Resolved]
  - Dehydration [Recovering/Resolving]
  - Renal impairment [Recovered/Resolved]
  - Neutropenia [Recovered/Resolved]

NARRATIVE: CASE EVENT DATE: 20190329
